FAERS Safety Report 7339684-7 (Version None)
Quarter: 2011Q1

REPORT INFORMATION
  Report Type: 
  Country: None (occurrence: None)
  Receive Date: 20110309
  Receipt Date: 20110302
  Transmission Date: 20110831
  Serious: Yes (Other)
  Sender: FDA-Public Use
  Company Number: MX-SP-2010-06075

PATIENT
  Sex: Female
  Weight: 45 kg

DRUGS (1)
  1. TICE BCG [Suspect]
     Indication: TUBERCULIN TEST
     Route: 058
     Dates: start: 20100728, end: 20100728

REACTIONS (6)
  - INJECTION SITE ERYTHEMA [None]
  - BLISTER [None]
  - INJECTION SITE PAIN [None]
  - INJECTION SITE ABSCESS [None]
  - INJECTION SITE ULCER [None]
  - WRONG DRUG ADMINISTERED [None]
